FAERS Safety Report 7657611-X (Version None)
Quarter: 2011Q3

REPORT INFORMATION
  Report Type: 
  Country: None (occurrence: None)
  Receive Date: 20110804
  Receipt Date: 20110719
  Transmission Date: 20111222
  Serious: Yes (Other)
  Sender: FDA-Public Use
  Company Number: US-ELI_LILLY_AND_COMPANY-US201106007533

PATIENT
  Age: 70 Year
  Sex: Male

DRUGS (5)
  1. EFFIENT [Suspect]
     Indication: STENT PLACEMENT
     Dosage: 10 MG, QD
     Route: 065
     Dates: start: 20110617
  2. LIPITOR [Concomitant]
     Dosage: 40 MG, UNKNOWN
     Route: 065
  3. ASPIRIN [Concomitant]
     Dosage: 325 MG, QD
     Route: 065
  4. DIOVAN [Concomitant]
     Dosage: 80 MG, UNKNOWN
     Route: 065
  5. IMDUR [Concomitant]
     Dosage: 60 MG, UNKNOWN
     Route: 065

REACTIONS (4)
  - DRUG ERUPTION [None]
  - NAUSEA [None]
  - VOMITING [None]
  - JAUNDICE [None]
